FAERS Safety Report 9959377 (Version 1)
Quarter: 2014Q1

REPORT INFORMATION
  Report Type: Spontaneous
  Country: US (occurrence: None)
  Receive Date: 20140228
  Receipt Date: 20140228
  Transmission Date: 20141002
  Serious: Yes (Other)
  Sender: FDA-Public Use
  Company Number: None

PATIENT
  Age: 34 Year
  Sex: Female

DRUGS (1)
  1. ENOXAPARIN [Suspect]
     Indication: SKIN DISORDER
     Dates: start: 20131220

REACTIONS (1)
  - Foetal death [None]
